FAERS Safety Report 25559007 (Version 2)
Quarter: 2025Q3

REPORT INFORMATION
  Report Type: Spontaneous
  Country: US (occurrence: US)
  Receive Date: 20250715
  Receipt Date: 20250715
  Transmission Date: 20251021
  Serious: No
  Sender: NOVO NORDISK
  Company Number: US-NOVOPROD-1453175

PATIENT
  Age: 67 Year
  Sex: Female

DRUGS (7)
  1. OZEMPIC [Suspect]
     Active Substance: SEMAGLUTIDE
     Indication: Type 2 diabetes mellitus
  2. OZEMPIC [Suspect]
     Active Substance: SEMAGLUTIDE
     Indication: Weight control
  3. OZEMPIC [Suspect]
     Active Substance: SEMAGLUTIDE
     Indication: Type 2 diabetes mellitus
     Dosage: 1MG QW
     Dates: start: 2023
  4. OZEMPIC [Suspect]
     Active Substance: SEMAGLUTIDE
     Indication: Weight control
     Dosage: 1MG QW
     Dates: start: 2024, end: 2025
  5. OZEMPIC [Suspect]
     Active Substance: SEMAGLUTIDE
     Dosage: 1MG QW
     Dates: start: 202503, end: 2025
  6. OZEMPIC [Suspect]
     Active Substance: SEMAGLUTIDE
  7. GABAPENTIN [Concomitant]
     Active Substance: GABAPENTIN
     Indication: Neuropathy peripheral

REACTIONS (3)
  - Weight loss poor [Recovered/Resolved]
  - Diabetes mellitus inadequate control [Not Recovered/Not Resolved]
  - Glycosylated haemoglobin increased [Unknown]

NARRATIVE: CASE EVENT DATE: 20240101
